FAERS Safety Report 4864310-6 (Version None)
Quarter: 2005Q4

REPORT INFORMATION
  Report Type: 
  Country: None (occurrence: None)
  Receive Date: 20051222
  Receipt Date: 20051003
  Transmission Date: 20060501
  Serious: Yes (Hospitalization)
  Sender: FDA-Public Use
  Company Number: US-KINGPHARMUSA00001-K200501296

PATIENT
  Age: 62 Year
  Sex: Male

DRUGS (3)
  1. ALTACE [Suspect]
     Route: 048
     Dates: end: 20050801
  2. PLAVIX [Concomitant]
     Route: 048
     Dates: start: 20050801, end: 20050810
  3. AUGMENTIN [Concomitant]
     Dosage: 3 G, UNK
     Route: 048
     Dates: start: 20050801, end: 20050810

REACTIONS (9)
  - DEHYDRATION [None]
  - DIARRHOEA [None]
  - GASTROINTESTINAL DISORDER [None]
  - HYPONATRAEMIA [None]
  - HYPOTENSION [None]
  - NAUSEA [None]
  - OLIGURIA [None]
  - RENAL FAILURE ACUTE [None]
  - VOMITING [None]
